FAERS Safety Report 21568373 (Version 1)
Quarter: 2022Q4

REPORT INFORMATION
  Report Type: Spontaneous
  Country: US (occurrence: None)
  Receive Date: 20221107
  Receipt Date: 20221107
  Transmission Date: 20230113
  Serious: Yes (Hospitalization)
  Sender: FDA-Public Use
  Company Number: None

PATIENT
  Age: 75 Year
  Sex: Male

DRUGS (2)
  1. FENTANYL TRANSDERMAL SYSTEM [Suspect]
     Active Substance: FENTANYL
     Indication: Pain
     Dosage: 50 MCG PER HOUR TOP?
     Route: 061
     Dates: start: 20210604, end: 20221104
  2. OXYCODONE HYDROCHLORIDE [Suspect]
     Active Substance: OXYCODONE HYDROCHLORIDE
     Indication: Pain
     Dosage: 10 MG PRN PO?
     Route: 048
     Dates: start: 20210606

REACTIONS (2)
  - Sedation [None]
  - Unresponsive to stimuli [None]

NARRATIVE: CASE EVENT DATE: 20221104
